FAERS Safety Report 11071947 (Version 2)
Quarter: 2015Q2

REPORT INFORMATION
  Report Type: Spontaneous
  Country: JP (occurrence: JP)
  Receive Date: 20150428
  Receipt Date: 20150519
  Transmission Date: 20150821
  Serious: Yes (Death, Life-Threatening)
  Sender: FDA-Public Use
  Company Number: JP-MALLINCKRODT-T201502170

PATIENT
  Age: 50 Year
  Sex: Male
  Weight: 77 kg

DRUGS (26)
  1. OXINORM [Concomitant]
     Active Substance: OXYCODONE HYDROCHLORIDE
     Dosage: 15 - 20MG, P.R.N.
     Route: 048
     Dates: start: 20140923
  2. FLAGYL [Concomitant]
     Active Substance: METRONIDAZOLE\METRONIDAZOLE HYDROCHLORIDE
     Dosage: 1500MG
     Route: 048
     Dates: end: 20150217
  3. METHADONE [Suspect]
     Active Substance: METHADONE HYDROCHLORIDE
     Dosage: 15 MG (45 MG DAILY DOSE)
     Route: 048
     Dates: start: 20141001, end: 20141008
  4. LYRICA [Concomitant]
     Active Substance: PREGABALIN
     Dosage: 300MG
     Route: 048
     Dates: end: 20150410
  5. MORPHINE HYDROCHLORIDE [Concomitant]
     Active Substance: MORPHINE HYDROCHLORIDE
     Dosage: 30MG
     Route: 048
     Dates: start: 20150305, end: 20150411
  6. MORPHINE HYDROCHLORIDE [Concomitant]
     Active Substance: MORPHINE HYDROCHLORIDE
     Dosage: 240MG
     Route: 048
     Dates: start: 20150305, end: 20150307
  7. MORPHINE HYDROCHLORIDE [Concomitant]
     Active Substance: MORPHINE HYDROCHLORIDE
     Dosage: 360MG
     Route: 048
     Dates: start: 20150307, end: 20150310
  8. METHADONE [Suspect]
     Active Substance: METHADONE HYDROCHLORIDE
     Dosage: 20MG, (60MG DAILY DOSE)
     Route: 048
     Dates: start: 20141008, end: 20141230
  9. METHADONE [Suspect]
     Active Substance: METHADONE HYDROCHLORIDE
     Dosage: 30MG, (90MG DAILY DOSE)
     Route: 048
     Dates: start: 20141230, end: 20150305
  10. METHADONE [Suspect]
     Active Substance: METHADONE HYDROCHLORIDE
     Dosage: 40MG, (120MG DAIY DOSE)
     Route: 048
     Dates: start: 20150305, end: 20150316
  11. LOXOPROFEN [Concomitant]
     Active Substance: LOXOPROFEN
     Dosage: 180MG
     Route: 048
     Dates: start: 20150217, end: 20150307
  12. METHADONE [Suspect]
     Active Substance: METHADONE HYDROCHLORIDE
     Indication: CANCER PAIN
     Dosage: 10 MG (30 MG DAILY DOSE)
     Route: 048
     Dates: start: 20140924, end: 20141001
  13. HYPEN [Concomitant]
     Active Substance: ETODOLAC
     Dosage: 800MG
     Route: 048
     Dates: end: 20150217
  14. REBAMIPIDE [Concomitant]
     Active Substance: REBAMIPIDE
     Dosage: 200MG
     Route: 048
     Dates: end: 20150217
  15. VOLTAREN [Concomitant]
     Active Substance: DICLOFENAC SODIUM
     Dosage: 75MG
     Route: 048
     Dates: start: 20150307, end: 20150410
  16. LANSOPRAZOLE. [Concomitant]
     Active Substance: LANSOPRAZOLE
     Dosage: 30MG
     Route: 048
     Dates: start: 20150217, end: 20150410
  17. MORPHINE HYDROCHLORIDE [Concomitant]
     Active Substance: MORPHINE HYDROCHLORIDE
     Dosage: 450MG
     Dates: start: 20150310, end: 20150313
  18. MORPHINE HYDROCHLORIDE [Concomitant]
     Active Substance: MORPHINE HYDROCHLORIDE
     Dosage: 500MG
     Route: 048
     Dates: start: 20150313, end: 20150410
  19. GABAPEN [Concomitant]
     Active Substance: GABAPENTIN
     Dosage: 1200MG
     Route: 048
     Dates: end: 20150217
  20. MORPHINE HYDROCHLORIDE [Concomitant]
     Active Substance: MORPHINE HYDROCHLORIDE
     Dosage: 600MG
     Route: 048
     Dates: start: 20150410, end: 20150411
  21. SIMPLE SYRUP [Concomitant]
     Dosage: 10ML
     Route: 048
     Dates: start: 20150305, end: 20150411
  22. METHADONE [Suspect]
     Active Substance: METHADONE HYDROCHLORIDE
     Dosage: 20MG, (60MG DAILY DOSE)
     Route: 048
     Dates: start: 20150316, end: 20150411
  23. FLAGYL [Concomitant]
     Active Substance: METRONIDAZOLE\METRONIDAZOLE HYDROCHLORIDE
     Dosage: 750MG
     Route: 048
     Dates: start: 20150217, end: 20150410
  24. CALONAL [Concomitant]
     Active Substance: ACETAMINOPHEN
     Dosage: 1800MG
     Route: 048
     Dates: end: 20150217
  25. TEGRETOL [Concomitant]
     Active Substance: CARBAMAZEPINE
     Dosage: 200MG
     Route: 048
     Dates: start: 20150226, end: 20150410
  26. KETALAR [Concomitant]
     Active Substance: KETAMINE HYDROCHLORIDE
     Dosage: 50MG
     Route: 048
     Dates: start: 20150410, end: 20150411

REACTIONS (5)
  - Colon cancer [Fatal]
  - Decubitus ulcer [Not Recovered/Not Resolved]
  - Hypoaesthesia [Not Recovered/Not Resolved]
  - Anaemia [Not Recovered/Not Resolved]
  - Skin ulcer [Not Recovered/Not Resolved]

NARRATIVE: CASE EVENT DATE: 20141120
